FAERS Safety Report 6554490-9 (Version None)
Quarter: 2010Q1

REPORT INFORMATION
  Report Type: 
  Country: None (occurrence: None)
  Receive Date: 20100127
  Receipt Date: 20100120
  Transmission Date: 20100710
  Serious: Yes (Life-Threatening, Hospitalization, Other)
  Sender: FDA-Public Use
  Company Number: SE-WYE-G05393010

PATIENT
  Sex: Female

DRUGS (5)
  1. EFFEXOR [Suspect]
     Indication: DEPRESSION
     Dosage: 75 MG X1 PER DAY FROM UNSPECIFIED DATE 2005
  2. EFFEXOR [Suspect]
     Dosage: 75 MG X 2 PER DAY FROM AN UNSPECIFIED DATE TO 2007
  3. EFFEXOR [Suspect]
     Dosage: 225 MG PER DAY FROM AN UNSPECIFIED DATE IN 2007
  4. EFFEXOR [Suspect]
     Dosage: 150 MG PER DAY FROM AN UNSPECIFIED DATE UNTIL SEP 2009
  5. TRIGYNON [Concomitant]
     Indication: CONTRACEPTION

REACTIONS (2)
  - PANCREATIC NEUROENDOCRINE TUMOUR METASTATIC [None]
  - SMALL INTESTINE CARCINOMA METASTATIC [None]
